FAERS Safety Report 18685034 (Version 4)
Quarter: 2021Q3

REPORT INFORMATION
  Report Type: Report from Study
  Country: US (occurrence: US)
  Receive Date: 20201230
  Receipt Date: 20210830
  Transmission Date: 20211014
  Serious: Yes (Disabling)
  Sender: FDA-Public Use
  Company Number: NVSC2020US340898

PATIENT
  Sex: Female

DRUGS (1)
  1. KESIMPTA [Suspect]
     Active Substance: OFATUMUMAB
     Indication: PRODUCT USED FOR UNKNOWN INDICATION
     Dosage: 20 MG, QMO (SOLUTION)
     Route: 058

REACTIONS (3)
  - Pruritus [Unknown]
  - Blindness [Unknown]
  - Multiple sclerosis [Unknown]
